FAERS Safety Report 13893402 (Version 1)
Quarter: 2017Q3

REPORT INFORMATION
  Report Type: Spontaneous
  Country: US (occurrence: US)
  Receive Date: 20170822
  Receipt Date: 20170822
  Transmission Date: 20171127
  Serious: No
  Sender: FDA-Public Use
  Company Number: US-ENDO PHARMACEUTICALS INC-2017-002779

PATIENT
  Sex: Male
  Weight: 92.97 kg

DRUGS (3)
  1. TESTOPEL [Suspect]
     Active Substance: TESTOSTERONE
     Indication: BLOOD TESTOSTERONE DECREASED
     Dosage: UNK, 10 PELLETS INSERTED
     Route: 058
     Dates: start: 2008
  2. INSULIN [Concomitant]
     Active Substance: INSULIN NOS
     Indication: TYPE 1 DIABETES MELLITUS
     Dosage: UNK, UNKNOWN
  3. TESTOPEL [Suspect]
     Active Substance: TESTOSTERONE
     Dosage: UNK, 6 PELLETS IMPLANTED ONCE
     Route: 058
     Dates: start: 201703

REACTIONS (5)
  - Dizziness [Unknown]
  - Muscular weakness [Unknown]
  - Dyspnoea [Unknown]
  - Lethargy [Unknown]
  - Prescribed overdose [Unknown]

NARRATIVE: CASE EVENT DATE: 2008
